FAERS Safety Report 21709318 (Version 2)
Quarter: 2022Q4

REPORT INFORMATION
  Report Type: Spontaneous
  Country: AU (occurrence: AU)
  Receive Date: 20221210
  Receipt Date: 20221224
  Transmission Date: 20230113
  Serious: Yes (Hospitalization, Other)
  Sender: FDA-Public Use
  Company Number: AU-Accord-290818

PATIENT
  Age: 72 Year
  Sex: Female

DRUGS (7)
  1. METHOTREXATE [Suspect]
     Active Substance: METHOTREXATE
     Indication: Osteoarthritis
     Dosage: 10MG WEEKLY
  2. HYDROXYCHLOROQUINE [Suspect]
     Active Substance: HYDROXYCHLOROQUINE
     Indication: Osteoarthritis
  3. TRIMETHOPRIM [Suspect]
     Active Substance: TRIMETHOPRIM
     Dosage: 300MG NOCTE
  4. PREDNISOLONE [Suspect]
     Active Substance: PREDNISOLONE
     Indication: Osteoarthritis
     Dosage: 5MG DAILY
  5. FOLIC ACID [Concomitant]
     Active Substance: FOLIC ACID
     Indication: Osteoarthritis
     Dosage: EXCLUDING THE DAY THE PATIENT WAS TAKING METHOTREXATE.
  6. ASPIRIN [Concomitant]
     Active Substance: ASPIRIN
     Indication: Cerebrovascular accident
  7. ATORVASTATIN [Concomitant]
     Active Substance: ATORVASTATIN
     Indication: Cerebrovascular accident

REACTIONS (11)
  - Urinary tract infection [Recovered/Resolved]
  - Pancytopenia [Recovered/Resolved]
  - Herpes simplex viraemia [Recovered/Resolved]
  - Mucosal inflammation [Recovered/Resolved]
  - Accessory spleen [Recovered/Resolved]
  - Diverticulitis [Recovered/Resolved]
  - Rash erythematous [Recovered/Resolved]
  - Skin ulcer [Recovered/Resolved]
  - Myocardial infarction [Recovered/Resolved]
  - Myelosuppression [Recovered/Resolved]
  - Off label use [Unknown]
